FAERS Safety Report 12492562 (Version 1)
Quarter: 2016Q2

REPORT INFORMATION
  Report Type: Spontaneous
  Country: US (occurrence: US)
  Receive Date: 20160623
  Receipt Date: 20160623
  Transmission Date: 20160815
  Serious: Yes (Hospitalization)
  Sender: FDA-Public Use
  Company Number: US-GLAXOSMITHKLINE-US2016GSK088782

PATIENT
  Sex: Female

DRUGS (1)
  1. ADVAIR HFA [Suspect]
     Active Substance: FLUTICASONE PROPIONATE\SALMETEROL XINAFOATE
     Indication: ASTHMA
     Dosage: 1 PUFF(S), BID
     Dates: start: 201605, end: 201606

REACTIONS (7)
  - Pain [Not Recovered/Not Resolved]
  - Feeding disorder [Recovered/Resolved]
  - Stomatitis [Not Recovered/Not Resolved]
  - Dysphagia [Recovered/Resolved]
  - Skin exfoliation [Not Recovered/Not Resolved]
  - Skin ulcer [Not Recovered/Not Resolved]
  - Nasal ulcer [Not Recovered/Not Resolved]

NARRATIVE: CASE EVENT DATE: 2016
